FAERS Safety Report 7540516-2 (Version None)
Quarter: 2011Q2

REPORT INFORMATION
  Report Type: 
  Country: None (occurrence: None)
  Receive Date: 20110610
  Receipt Date: 20110602
  Transmission Date: 20111010
  Serious: Yes (Other)
  Sender: FDA-Public Use
  Company Number: A0930837A

PATIENT
  Sex: Male

DRUGS (11)
  1. BROVANA [Suspect]
     Indication: CHRONIC OBSTRUCTIVE PULMONARY DISEASE
     Route: 065
  2. PROZAC [Suspect]
     Dosage: 20MG UNKNOWN
     Route: 065
  3. KLONOPIN [Suspect]
     Dosage: 5MG UNKNOWN
     Route: 065
  4. ASPIRIN [Suspect]
     Dosage: 81MG UNKNOWN
     Route: 065
  5. ALBUTEROL [Suspect]
     Indication: CHRONIC OBSTRUCTIVE PULMONARY DISEASE
     Dosage: 2.5MG UNKNOWN
     Route: 065
  6. PREDNISONE [Suspect]
     Indication: EMPHYSEMA
     Dosage: 40MG SIX TIMES PER DAY
     Route: 065
  7. SPIRIVA [Suspect]
     Indication: CHRONIC OBSTRUCTIVE PULMONARY DISEASE
     Dosage: 18MCG IN THE MORNING
     Route: 055
  8. LIPITOR [Suspect]
     Indication: BLOOD CHOLESTEROL INCREASED
     Dosage: 40MG PER DAY
     Route: 065
  9. ZETIA [Suspect]
     Dosage: 10MG UNKNOWN
     Route: 065
  10. PULMICORT [Suspect]
     Indication: CHRONIC OBSTRUCTIVE PULMONARY DISEASE
     Route: 065
  11. TOPROL-XL [Suspect]
     Dosage: 25MG UNKNOWN
     Route: 065

REACTIONS (6)
  - DIABETES MELLITUS [None]
  - ABASIA [None]
  - MUSCLE DISORDER [None]
  - PARAESTHESIA [None]
  - MUSCULAR WEAKNESS [None]
  - EXERCISE TOLERANCE DECREASED [None]
